FAERS Safety Report 9739729 (Version 1)
Quarter: 2013Q4

REPORT INFORMATION
  Report Type: Spontaneous
  Country: JP (occurrence: JP)
  Receive Date: 20131209
  Receipt Date: 20131209
  Transmission Date: 20140711
  Serious: No
  Sender: FDA-Public Use
  Company Number: JP-JNJFOC-20131116264

PATIENT
  Sex: Female

DRUGS (1)
  1. DUROTEP MT [Suspect]
     Indication: CANCER PAIN
     Route: 062
     Dates: start: 20130910

REACTIONS (4)
  - Expired drug administered [Unknown]
  - Chest pain [Unknown]
  - Mental disorder [Unknown]
  - Pain [Unknown]
